FAERS Safety Report 6571445-9 (Version None)
Quarter: 2010Q1

REPORT INFORMATION
  Report Type: 
  Country: None (occurrence: None)
  Receive Date: 20100205
  Receipt Date: 20100125
  Transmission Date: 20100710
  Serious: Yes (Death)
  Sender: FDA-Public Use
  Company Number: DE-PFIZER INC-2010013594

PATIENT
  Age: 63 Year
  Sex: Male

DRUGS (3)
  1. ARGATRA [Suspect]
     Indication: HEPARIN-INDUCED THROMBOCYTOPENIA
     Dosage: 32.75 MG, 1X/DAY
     Route: 042
     Dates: start: 20091222, end: 20091224
  2. ARTERENOL [Concomitant]
     Dosage: 0.2 MG/ML, UNK
     Dates: start: 20091210, end: 20091224
  3. DOBUTREX [Concomitant]
     Dosage: 5 MG/ML, UNK
     Dates: start: 20091217, end: 20091224

REACTIONS (3)
  - MULTI-ORGAN FAILURE [None]
  - RENAL FAILURE [None]
  - SEPSIS [None]
